FAERS Safety Report 14603301 (Version 3)
Quarter: 2018Q3

REPORT INFORMATION
  Report Type: Spontaneous
  Country: GB (occurrence: GB)
  Receive Date: 20180306
  Receipt Date: 20180925
  Transmission Date: 20181010
  Serious: Yes (Other)
  Sender: FDA-Public Use
  Company Number: GB-JNJFOC-20180235867

PATIENT
  Age: 63 Year
  Sex: Female
  Weight: 76 kg

DRUGS (24)
  1. CEFUROXIME. [Concomitant]
     Active Substance: CEFUROXIME
     Indication: INFECTION PROPHYLAXIS
     Route: 065
     Dates: start: 20171031, end: 20171031
  2. ADRENALINE [Concomitant]
     Active Substance: EPINEPHRINE
     Indication: LOCAL ANAESTHESIA
     Route: 058
     Dates: start: 20171031, end: 20171031
  3. MIDAZOLAM [Interacting]
     Active Substance: MIDAZOLAM HYDROCHLORIDE
     Indication: SEIZURE
     Dosage: TOTAL
     Route: 042
     Dates: start: 20171031, end: 20171031
  4. MIDAZOLAM [Interacting]
     Active Substance: MIDAZOLAM HYDROCHLORIDE
     Indication: SEIZURE
     Route: 042
     Dates: start: 20171031, end: 20171031
  5. LONGTEC [Suspect]
     Active Substance: OXYCODONE HYDROCHLORIDE
     Indication: PREMEDICATION
     Route: 048
     Dates: start: 20171031, end: 20171031
  6. LONGTEC [Suspect]
     Active Substance: OXYCODONE HYDROCHLORIDE
     Indication: SEIZURE
     Route: 048
     Dates: start: 20171031, end: 20171031
  7. LONGTEC [Suspect]
     Active Substance: OXYCODONE HYDROCHLORIDE
     Indication: PREMEDICATION
     Route: 048
  8. LONGTEC [Suspect]
     Active Substance: OXYCODONE HYDROCHLORIDE
     Indication: PAIN
     Route: 048
  9. LONGTEC [Suspect]
     Active Substance: OXYCODONE HYDROCHLORIDE
     Indication: SEDATION
     Route: 048
  10. PARACETAMOL [Concomitant]
     Active Substance: ACETAMINOPHEN
     Indication: PREMEDICATION
     Route: 048
     Dates: start: 20171031, end: 20171031
  11. BUCCASTEM [Concomitant]
     Active Substance: PROCHLORPERAZINE MALEATE
     Route: 002
  12. GABAPENTIN. [Concomitant]
     Active Substance: GABAPENTIN
     Indication: PREMEDICATION
     Route: 048
     Dates: start: 20171031, end: 20171031
  13. FENTANYL. [Suspect]
     Active Substance: FENTANYL
     Indication: PRODUCT USED FOR UNKNOWN INDICATION
     Route: 062
     Dates: start: 20171031, end: 20171031
  14. MIDAZOLAM [Interacting]
     Active Substance: MIDAZOLAM HYDROCHLORIDE
     Indication: SEDATION
     Route: 042
     Dates: start: 20171031, end: 20171031
  15. TRANEXAMIC ACID. [Concomitant]
     Active Substance: TRANEXAMIC ACID
     Indication: HAEMORRHAGE PROPHYLAXIS
     Dosage: TOTAL
     Route: 065
     Dates: start: 20171031, end: 20171031
  16. BISOXATINE [Concomitant]
     Route: 002
  17. LONGTEC [Suspect]
     Active Substance: OXYCODONE HYDROCHLORIDE
     Indication: PAIN
     Route: 048
     Dates: start: 20171031, end: 20171031
  18. LONGTEC [Suspect]
     Active Substance: OXYCODONE HYDROCHLORIDE
     Indication: SEIZURE
     Route: 048
  19. MARCAIN HEAVY [Suspect]
     Active Substance: BUPIVACAINE HYDROCHLORIDE
     Indication: SPINAL ANAESTHESIA
     Route: 037
     Dates: start: 20171031, end: 20171031
  20. BUPIVACAINE AND ADRENALIN [Concomitant]
     Active Substance: BUPIVACAINE HYDROCHLORIDE\EPINEPHRINE
     Indication: LOCAL ANAESTHESIA
     Route: 058
     Dates: start: 20171031, end: 20171031
  21. FENTANYL CITRATE. [Suspect]
     Active Substance: FENTANYL CITRATE
     Indication: SPINAL ANAESTHESIA
     Route: 037
     Dates: start: 20171031, end: 20171031
  22. COCODAMOL [Suspect]
     Active Substance: ACETAMINOPHEN\CODEINE PHOSPHATE
     Indication: PRODUCT USED FOR UNKNOWN INDICATION
     Route: 065
  23. LONGTEC [Suspect]
     Active Substance: OXYCODONE HYDROCHLORIDE
     Indication: SEDATION
     Route: 048
     Dates: start: 20171031, end: 20171031
  24. MIDAZOLAM [Interacting]
     Active Substance: MIDAZOLAM HYDROCHLORIDE
     Indication: SEDATION
     Dosage: TOTAL
     Route: 042
     Dates: start: 20171031, end: 20171031

REACTIONS (4)
  - Drug interaction [Recovered/Resolved]
  - Hyperaesthesia [Recovered/Resolved]
  - Product use issue [Unknown]
  - Off label use [Unknown]

NARRATIVE: CASE EVENT DATE: 20171031
